FAERS Safety Report 25795623 (Version 1)
Quarter: 2025Q3

REPORT INFORMATION
  Report Type: Spontaneous
  Country: US (occurrence: None)
  Receive Date: 20250911
  Receipt Date: 20250911
  Transmission Date: 20251021
  Serious: Yes (Other)
  Sender: FDA-CTU
  Company Number: None

PATIENT
  Age: 31 Year
  Sex: Female
  Weight: 68.49 kg

DRUGS (1)
  1. VIVITROL [Suspect]
     Active Substance: NALTREXONE
     Dosage: OTHER QUANTITY : 380MG-0.75ML;?FREQUENCY : MONTHLY;?
     Route: 058

REACTIONS (4)
  - Immediate post-injection reaction [None]
  - Loss of consciousness [None]
  - Refusal of treatment by patient [None]
  - Alanine aminotransferase increased [None]

NARRATIVE: CASE EVENT DATE: 20250911
